FAERS Safety Report 20628065 (Version 1)
Quarter: 2022Q1

REPORT INFORMATION
  Report Type: Other
  Country: ES (occurrence: ES)
  Receive Date: 20220323
  Receipt Date: 20220323
  Transmission Date: 20220423
  Serious: Yes (Other)
  Sender: FDA-Public Use
  Company Number: None

PATIENT
  Age: 31 Year
  Sex: Female
  Weight: 77 kg

DRUGS (1)
  1. FETROJA [Suspect]
     Active Substance: CEFIDEROCOL SULFATE TOSYLATE
     Indication: Product used for unknown indication
     Dosage: 2 G EVERY 8 HOUR (2 GRAMOS CADA 8 HORAS)
     Route: 042
     Dates: start: 20220305, end: 20220307

REACTIONS (5)
  - Erythema [Recovered/Resolved]
  - Hyperhidrosis [Recovered/Resolved]
  - Ear pain [Recovered/Resolved]
  - Throat irritation [Recovered/Resolved]
  - Nausea [Recovered/Resolved]

NARRATIVE: CASE EVENT DATE: 20220307
